FAERS Safety Report 17513430 (Version 2)
Quarter: 2020Q1

REPORT INFORMATION
  Report Type: Spontaneous
  Country: CZ (occurrence: CZ)
  Receive Date: 20200306
  Receipt Date: 20200319
  Transmission Date: 20200409
  Serious: No
  Sender: FDA-Public Use
  Company Number: CZ-EMD SERONO-E2B_90075125

PATIENT
  Sex: Female
  Weight: 88 kg

DRUGS (12)
  1. MAVENCLAD [Suspect]
     Active Substance: CLADRIBINE
     Indication: MULTIPLE SCLEROSIS
     Dosage: FIRST WEEK THERAPY: TWO TABLETS ON DAYS 1 TO 3 AND ONE TABLET ON DAYS 4 AND 5.
     Dates: start: 20200106, end: 20200110
  2. VIGANTOL                           /00318501/ [Concomitant]
     Active Substance: CHOLECALCIFEROL
     Indication: VITAMIN D DEFICIENCY
     Dosage: 9 DROPS A DAY AS A SUPPORTIVE TREATMENT
  3. VENTOLIN [Concomitant]
     Active Substance: ALBUTEROL SULFATE
     Indication: ASTHMA
  4. DETRALEX [Concomitant]
     Active Substance: DIOSMIN\HESPERIDIN
     Indication: PERIPHERAL VENOUS DISEASE
     Dosage: TWICE IN A DAY
  5. PREGABALIN. [Concomitant]
     Active Substance: PREGABALIN
     Indication: PARAESTHESIA
     Dosage: THE PATIENT TOOK 75MG ONCE INA DAY TILL 20 JAN 2020. LATER,ON INCREASED TO TWICE IN A DAY.
     Dates: start: 20200106, end: 20200203
  6. CARZAP [Concomitant]
     Indication: HYPERTENSION
  7. NOLPAZA [Concomitant]
     Active Substance: PANTOPRAZOLE SODIUM
     Indication: GASTROOESOPHAGEAL REFLUX DISEASE
  8. LETROX [Concomitant]
     Active Substance: LEVOTHYROXINE SODIUM
     Indication: AUTOIMMUNE THYROIDITIS
     Route: 048
  9. AERIUS                             /01009701/ [Concomitant]
     Active Substance: EBASTINE
     Indication: ASTHMA
     Dosage: ONCE IN A DAY
  10. COMBAIR                            /01261001/ [Concomitant]
     Indication: ASTHMA
     Dosage: 200/6 TWO INJECTIONS A DAY
  11. MAVENCLAD [Suspect]
     Active Substance: CLADRIBINE
     Dosage: SECOND WEEK THERAPY:  TWO TABLETS ON DAYS 1 TO 2 AND ONE TABLET ON DAYS 3 TO 5.??STOP DATE: 06-MAR-2
     Dates: start: 20200302
  12. TRITTICO [Concomitant]
     Active Substance: TRAZODONE HYDROCHLORIDE
     Indication: DEPRESSION

REACTIONS (1)
  - Liver function test increased [Unknown]
